FAERS Safety Report 9243257 (Version 2)
Quarter: 2013Q2

REPORT INFORMATION
  Report Type: Spontaneous
  Country: US (occurrence: US)
  Receive Date: 20130419
  Receipt Date: 20130507
  Transmission Date: 20140414
  Serious: Yes (Hospitalization)
  Sender: FDA-Public Use
  Company Number: PHHY2013US037718

PATIENT
  Age: 94 Year
  Sex: Female

DRUGS (2)
  1. ASCRIPTIN BUFFERED REG STRENGTH TABLETS [Suspect]
     Indication: ARTHRALGIA
     Dosage: 1 DF, QW2
     Route: 048
  2. MECLOZINE HYDROCHLORIDE W/NICOTINIC ACID [Concomitant]
     Indication: VERTIGO

REACTIONS (5)
  - Head injury [Recovered/Resolved]
  - Wrist fracture [Recovered/Resolved]
  - Epistaxis [Recovered/Resolved]
  - Fall [Recovered/Resolved]
  - Incorrect drug administration duration [Unknown]
